FAERS Safety Report 4909866-X (Version None)
Quarter: 2006Q1

REPORT INFORMATION
  Report Type: 
  Country: None (occurrence: None)
  Receive Date: 20060208
  Receipt Date: 20060201
  Transmission Date: 20060701
  Serious: Yes (Hospitalization, Other)
  Sender: FDA-Public Use
  Company Number: 2006005840

PATIENT
  Age: 40 Year
  Sex: Male
  Weight: 102.5129 kg

DRUGS (3)
  1. LYRICA [Suspect]
     Indication: ILL-DEFINED DISORDER
     Dosage: 150 MG (75 MG, 2 IN 1 D),
     Dates: start: 20051117, end: 20060103
  2. CYTOXAN [Concomitant]
  3. SOLU-MEDROL [Concomitant]

REACTIONS (2)
  - CARDIAC FAILURE CONGESTIVE [None]
  - FLUID RETENTION [None]
